FAERS Safety Report 6016951-0 (Version None)
Quarter: 2008Q4

REPORT INFORMATION
  Report Type: 
  Country: None (occurrence: None)
  Receive Date: 20081219
  Receipt Date: 20081204
  Transmission Date: 20090506
  Serious: Yes (Hospitalization)
  Sender: FDA-Public Use
  Company Number: KV200800947

PATIENT
  Age: 89 Year
  Sex: Female
  Weight: 63.9 kg

DRUGS (10)
  1. ISOSORBIDE MONONITRATE [Suspect]
     Indication: CARDIAC DISORDER
     Dosage: 30 MG, QD, ORAL
     Route: 048
     Dates: start: 20060101
  2. ASPIRIN [Concomitant]
  3. ATENOLOL [Concomitant]
  4. SIMVASTATIN [Concomitant]
  5. LASIX [Concomitant]
  6. LISINOPRIL [Concomitant]
  7. LACTULOSE [Concomitant]
  8. PRO-AIR (PROCATEROL HYDROCHLORIDE) [Concomitant]
  9. ACETAMINOPHEN [Concomitant]
  10. FLONASE [Concomitant]

REACTIONS (5)
  - ASTHENIA [None]
  - DIARRHOEA [None]
  - PRODUCT QUALITY ISSUE [None]
  - VOMITING [None]
  - WEIGHT DECREASED [None]
